FAERS Safety Report 15163555 (Version 2)
Quarter: 2019Q2

REPORT INFORMATION
  Report Type: Spontaneous
  Country: SE (occurrence: SE)
  Receive Date: 20180719
  Receipt Date: 20190629
  Transmission Date: 20190711
  Serious: Yes (Life-Threatening, Hospitalization, Other)
  Sender: FDA-Public Use
  Company Number: SE-AUROBINDO-AUR-APL-2018-036105

PATIENT

DRUGS (3)
  1. CALCICHEW D3 CITRON [Concomitant]
     Indication: PRODUCT USED FOR UNKNOWN INDICATION
     Dosage: UNK
     Route: 065
     Dates: start: 20171215
  2. ALENDRONAT RANBAXY [Concomitant]
     Indication: PRODUCT USED FOR UNKNOWN INDICATION
     Dosage: UNK
     Route: 065
     Dates: start: 20171215
  3. SERTRALINE [Suspect]
     Active Substance: SERTRALINE HYDROCHLORIDE
     Indication: DEPRESSION
     Dosage: 1 TABLET DAILY
     Route: 065
     Dates: start: 20160418, end: 20180514

REACTIONS (8)
  - Loss of consciousness [Recovering/Resolving]
  - Psychomotor hyperactivity [Recovering/Resolving]
  - Sleep disorder [Recovering/Resolving]
  - Muscle spasms [Recovering/Resolving]
  - Blindness transient [Recovering/Resolving]
  - Dizziness [Recovering/Resolving]
  - Pyrexia [Recovering/Resolving]
  - Chest pain [Recovering/Resolving]

NARRATIVE: CASE EVENT DATE: 20180505
